FAERS Safety Report 4355563-1 (Version None)
Quarter: 2004Q2

REPORT INFORMATION
  Report Type: 
  Country: None (occurrence: None)
  Receive Date: 20040430
  Receipt Date: 20030926
  Transmission Date: 20050107
  Serious: Yes (Hospitalization)
  Sender: FDA-Public Use
  Company Number: KDL032821

PATIENT
  Age: 57 Year
  Sex: Female

DRUGS (3)
  1. EPOGEN [Suspect]
     Indication: ANAEMIA OF MALIGNANT DISEASE
     Dosage: 40000 U, WEEKLY, SC
     Route: 058
     Dates: start: 20021201
  2. CYCLOPHOSPHAMIDE [Concomitant]
  3. VINCRISTINE SULFATE [Concomitant]

REACTIONS (2)
  - MEDICATION TAMPERING [None]
  - THERAPEUTIC RESPONSE DECREASED [None]
